FAERS Safety Report 7878623-7 (Version None)
Quarter: 2011Q4

REPORT INFORMATION
  Report Type: 
  Country: None (occurrence: None)
  Receive Date: 20111101
  Receipt Date: 20111026
  Transmission Date: 20120403
  Serious: Yes (Hospitalization, Other)
  Sender: FDA-Public Use
  Company Number: JP-BAYER-2011-083996

PATIENT
  Age: 75 Year
  Sex: Male

DRUGS (2)
  1. URSO 250 [Concomitant]
     Route: 048
  2. NEXAVAR [Suspect]
     Indication: HEPATIC NEOPLASM MALIGNANT
     Dosage: 400 MG, QD
     Route: 048
     Dates: start: 20110906, end: 20111012

REACTIONS (6)
  - BLOOD AMYLASE INCREASED [None]
  - ATRIAL FLUTTER [None]
  - HYPERTENSION [None]
  - CHOLANGITIS [None]
  - SEPTIC SHOCK [None]
  - PALMAR-PLANTAR ERYTHRODYSAESTHESIA SYNDROME [None]
